FAERS Safety Report 18233326 (Version 1)
Quarter: 2020Q3

REPORT INFORMATION
  Report Type: Spontaneous
  Country: US (occurrence: US)
  Receive Date: 20200904
  Receipt Date: 20200904
  Transmission Date: 20201103
  Serious: Yes (Hospitalization, Other)
  Sender: FDA-Public Use
  Company Number: US-APOTEX-2020AP017085

PATIENT
  Age: 38 Year
  Sex: Female

DRUGS (10)
  1. QUETIAPINE. [Concomitant]
     Active Substance: QUETIAPINE
     Indication: HALLUCINATION, AUDITORY
  2. PALIPERIDONE. [Concomitant]
     Active Substance: PALIPERIDONE
     Indication: HALLUCINATION, AUDITORY
  3. ARIPIPRAZOLE. [Suspect]
     Active Substance: ARIPIPRAZOLE
     Indication: BIPOLAR I DISORDER
     Dosage: 10 MILLIGRAM, QD
     Route: 048
     Dates: start: 20181220, end: 20190102
  4. QUETIAPINE. [Concomitant]
     Active Substance: QUETIAPINE
     Indication: BIPOLAR I DISORDER
     Dosage: 400 MILLIGRAM, BID
     Route: 048
  5. CARIPRAZINE [Suspect]
     Active Substance: CARIPRAZINE
     Indication: HALLUCINATION, AUDITORY
  6. CARIPRAZINE [Suspect]
     Active Substance: CARIPRAZINE
     Indication: BIPOLAR I DISORDER
     Dosage: 1.5 MILLIGRAM, QD
     Route: 048
     Dates: start: 201609
  7. ZIPRASIDONE. [Suspect]
     Active Substance: ZIPRASIDONE
     Indication: BIPOLAR I DISORDER
     Dosage: 20 MILLIGRAM, BID
     Route: 048
     Dates: start: 201812
  8. ZIPRASIDONE. [Suspect]
     Active Substance: ZIPRASIDONE
     Indication: HALLUCINATION, AUDITORY
  9. ARIPIPRAZOLE. [Suspect]
     Active Substance: ARIPIPRAZOLE
     Indication: HALLUCINATION, AUDITORY
  10. PALIPERIDONE. [Concomitant]
     Active Substance: PALIPERIDONE
     Indication: BIPOLAR I DISORDER
     Dosage: UNK UNK, Q.M.T.
     Route: 030

REACTIONS (4)
  - Akathisia [Recovered/Resolved]
  - Product administration error [Unknown]
  - Tardive dyskinesia [Recovered/Resolved]
  - Condition aggravated [Recovered/Resolved]
